FAERS Safety Report 8054988-0 (Version None)
Quarter: 2012Q1

REPORT INFORMATION
  Report Type: 
  Country: None (occurrence: None)
  Receive Date: 20120119
  Receipt Date: 20120113
  Transmission Date: 20120608
  Serious: Yes (Hospitalization, Disabling, Other)
  Sender: FDA-Public Use
  Company Number: US-PFIZER INC-2012011020

PATIENT
  Sex: Female
  Weight: 70.295 kg

DRUGS (7)
  1. ACETYLSALICYLIC ACID [Concomitant]
     Indication: TRANSIENT ISCHAEMIC ATTACK
  2. TRAMADOL [Concomitant]
     Indication: HEADACHE
     Dosage: UNK, AS NEEDED
  3. DILANTIN [Suspect]
     Indication: EPILEPSY
     Dosage: 300 MG, DAILY
     Route: 048
  4. ANTIVERT [Suspect]
     Indication: EAR DISORDER
     Dosage: 25 MG, 3X/DAY
     Route: 048
     Dates: start: 20060101
  5. ACETYLSALICYLIC ACID [Concomitant]
     Indication: CARDIAC DISORDER
     Dosage: 81 MG, DAILY
  6. HYDROCHLOROTHIAZIDE [Concomitant]
     Indication: DIURETIC THERAPY
     Dosage: 12.5 MG, DAILY
     Dates: start: 20090101
  7. ACETAMINOPHEN [Concomitant]
     Indication: HEADACHE
     Dosage: UNK

REACTIONS (8)
  - MACULAR DEGENERATION [None]
  - BLINDNESS UNILATERAL [None]
  - CHRONIC OBSTRUCTIVE PULMONARY DISEASE [None]
  - ANXIETY [None]
  - INTRAOCULAR PRESSURE INCREASED [None]
  - CARDIAC DISORDER [None]
  - ASTHMA [None]
  - ARTERIAL OCCLUSIVE DISEASE [None]
